FAERS Safety Report 19495108 (Version 1)
Quarter: 2021Q3

REPORT INFORMATION
  Report Type: Spontaneous
  Country: DE (occurrence: DE)
  Receive Date: 20210706
  Receipt Date: 20210706
  Transmission Date: 20211014
  Serious: Yes (Hospitalization)
  Sender: FDA-Public Use
  Company Number: DE-TEVA-2021-DE-1928419

PATIENT
  Age: 70 Year
  Sex: Female
  Weight: 58 kg

DRUGS (7)
  1. RAMIPRIL. [Concomitant]
     Active Substance: RAMIPRIL
     Dosage: 2.5 MILLIGRAM DAILY; 0?0?1?0
     Route: 048
  2. BISOPROLOL [Concomitant]
     Active Substance: BISOPROLOL
     Dosage: 2.5 MILLIGRAM DAILY;  0?0?1?0
     Route: 048
  3. LEVOTHYROXIN?NATRIUM [Suspect]
     Active Substance: LEVOTHYROXINE SODIUM
     Dosage: 75 MICROGRAM DAILY; 1?0?0?0
     Route: 048
  4. ALENDRONSAURE [Concomitant]
     Active Substance: ALENDRONIC ACID
     Dosage: 70 MG, ONE TABLET ON SUNDAYS, TABLETS
     Route: 048
  5. NITRENDIPIN [Concomitant]
     Active Substance: NITRENDIPINE
     Dosage: 10 MILLIGRAM DAILY; 0?0?1?0
     Route: 048
  6. ATORVASTATIN [Concomitant]
     Active Substance: ATORVASTATIN
     Dosage: 10 MILLIGRAM DAILY; 0?0?1?0
     Route: 048
  7. ACETYLSALICYLSAURE [Concomitant]
     Active Substance: ASPIRIN
     Dosage: 100 MILLIGRAM DAILY; 0?0?1?0
     Route: 048

REACTIONS (1)
  - Dizziness [Unknown]

NARRATIVE: CASE EVENT DATE: 20200711
